FAERS Safety Report 7380862-9 (Version None)
Quarter: 2011Q1

REPORT INFORMATION
  Report Type: 
  Country: None (occurrence: None)
  Receive Date: 20110329
  Receipt Date: 20110317
  Transmission Date: 20110831
  Serious: Yes (Other)
  Sender: FDA-Public Use
  Company Number: PHHY2011AU22013

PATIENT
  Sex: Female

DRUGS (1)
  1. STALEVO 100 [Suspect]
     Route: 048

REACTIONS (2)
  - DELIRIUM [None]
  - DYSPHAGIA [None]
